FAERS Safety Report 21477963 (Version 1)
Quarter: 2022Q4

REPORT INFORMATION
  Report Type: Spontaneous
  Country: CA (occurrence: CA)
  Receive Date: 20221019
  Receipt Date: 20221019
  Transmission Date: 20230113
  Serious: Yes (Hospitalization)
  Sender: FDA-Public Use
  Company Number: CA-ABBVIE-4149865

PATIENT
  Age: 92 Year
  Sex: Female
  Weight: 58 kg

DRUGS (1)
  1. HUMIRA [Suspect]
     Active Substance: ADALIMUMAB
     Indication: Rheumatoid arthritis
     Route: 058

REACTIONS (5)
  - COVID-19 [Recovered/Resolved]
  - Inappropriate schedule of product administration [Recovered/Resolved]
  - Joint swelling [Recovered/Resolved]
  - Dehydration [Recovered/Resolved]
  - Illness [Recovered/Resolved]
